FAERS Safety Report 20119980 (Version 5)
Quarter: 2022Q2

REPORT INFORMATION
  Report Type: Report from Study
  Country: US (occurrence: US)
  Receive Date: 20211126
  Receipt Date: 20220419
  Transmission Date: 20220721
  Serious: No
  Sender: FDA-Public Use
  Company Number: US-NOVARTISTESTPH-NVSC2021US270565

PATIENT
  Age: 60 Year
  Sex: Female

DRUGS (1)
  1. COSENTYX [Suspect]
     Active Substance: SECUKINUMAB
     Indication: Axial spondyloarthritis
     Dosage: UNK UNK, QW
     Route: 058

REACTIONS (7)
  - Pain in extremity [Unknown]
  - Screaming [Unknown]
  - Diarrhoea [Unknown]
  - Insomnia [Unknown]
  - Nasopharyngitis [Recovering/Resolving]
  - Injection site laceration [Unknown]
  - Drug ineffective [Unknown]

NARRATIVE: CASE EVENT DATE: 20211121
